FAERS Safety Report 4472729-0 (Version None)
Quarter: 2004Q4

REPORT INFORMATION
  Report Type: 
  Country: None (occurrence: None)
  Receive Date: 20041012
  Receipt Date: 20041012
  Transmission Date: 20050328
  Serious: Yes (Hospitalization)
  Sender: FDA-Public Use
  Company Number: None

PATIENT
  Age: 57 Year
  Sex: Female

DRUGS (1)
  1. AMIODARONE 600 MG PO Q12H X 2 THEN 400 MG BID [Suspect]
     Dosage: 600 MG PO Q12H X 2 THEN 400 MG BID
     Route: 048

REACTIONS (2)
  - CHEST X-RAY ABNORMAL [None]
  - PULMONARY OEDEMA [None]
